FAERS Safety Report 18182043 (Version 3)
Quarter: 2020Q4

REPORT INFORMATION
  Report Type: Spontaneous
  Country: US (occurrence: US)
  Receive Date: 20200821
  Receipt Date: 20201219
  Transmission Date: 20210113
  Serious: Yes (Hospitalization, Other)
  Sender: FDA-Public Use
  Company Number: US-MALLINCKRODT-T202004185

PATIENT
  Sex: Male

DRUGS (2)
  1. H.P. ACTHAR [Suspect]
     Active Substance: CORTICOTROPIN
     Indication: IRIDOCYCLITIS
     Dosage: UNK
     Route: 065
  2. H.P. ACTHAR [Suspect]
     Active Substance: CORTICOTROPIN
     Dosage: 80 UNITS 3 X/WEEK
     Route: 065
     Dates: start: 20181106

REACTIONS (10)
  - Corneal disorder [Unknown]
  - Hypotension [Unknown]
  - Gastric infection [Not Recovered/Not Resolved]
  - Pneumonia [Recovering/Resolving]
  - Corneal transplant [Recovered/Resolved]
  - Sacroiliitis [Unknown]
  - Deep vein thrombosis [Unknown]
  - Localised infection [Recovering/Resolving]
  - Myocardial infarction [Unknown]
  - Coronary artery bypass [Unknown]

NARRATIVE: CASE EVENT DATE: 2020
